FAERS Safety Report 14922039 (Version 1)
Quarter: 2018Q2

REPORT INFORMATION
  Report Type: Spontaneous
  Country: FR (occurrence: FR)
  Receive Date: 20180522
  Receipt Date: 20180522
  Transmission Date: 20180711
  Serious: Yes (Other)
  Sender: FDA-Public Use
  Company Number: FR-MERCK KGAA-2048213

PATIENT
  Sex: Female

DRUGS (1)
  1. NOVOTHYROX [Suspect]
     Active Substance: LEVOTHYROXINE SODIUM
     Indication: PRODUCT USED FOR UNKNOWN INDICATION

REACTIONS (18)
  - Nausea [None]
  - Loss of personal independence in daily activities [None]
  - Urinary incontinence [None]
  - Fear [None]
  - Decreased activity [None]
  - Gait disturbance [None]
  - Personal relationship issue [None]
  - Nocturia [None]
  - Movement disorder [None]
  - Muscular weakness [None]
  - Loss of consciousness [None]
  - Renal pain [None]
  - Headache [None]
  - Balance disorder [None]
  - Depression [None]
  - Asthenia [None]
  - Sleep disorder [None]
  - Mood swings [None]
